FAERS Safety Report 22642127 (Version 1)
Quarter: 2023Q2

REPORT INFORMATION
  Report Type: Report from Study
  Country: US (occurrence: US)
  Receive Date: 20230626
  Receipt Date: 20230626
  Transmission Date: 20230722
  Serious: Yes (Other)
  Sender: FDA-Public Use
  Company Number: US-ABBVIE-4280382

PATIENT
  Age: 79 Year
  Sex: Female
  Weight: 72 kg

DRUGS (14)
  1. HUMIRA [Suspect]
     Active Substance: ADALIMUMAB
     Indication: Crohn^s disease
     Dosage: CITRATE FREE
     Route: 058
  2. HUMIRA [Suspect]
     Active Substance: ADALIMUMAB
     Dosage: CITRATE FREE
     Route: 058
     Dates: start: 20140901
  3. HUMIRA [Suspect]
     Active Substance: ADALIMUMAB
     Dosage: FIRST ADMIN DATE AT LEAST 10 YEARS AGO.?CITRATE FREE
     Route: 058
  4. ATROPINE\DIPHENOXYLATE [Concomitant]
     Active Substance: ATROPINE\DIPHENOXYLATE
     Indication: Product used for unknown indication
     Dosage: 2.5 MILLIGRAM AS NEEDED
  5. CITALOPRAM [Concomitant]
     Active Substance: CITALOPRAM HYDROBROMIDE
     Indication: Product used for unknown indication
     Dosage: FORM STRENGTH: 20 MILLIGRAM
  6. VITAMIN B12 [Concomitant]
     Active Substance: CYANOCOBALAMIN
     Indication: Product used for unknown indication
     Dosage: 1000 PER DAY
     Route: 060
  7. PANTOPRAZOLE [Concomitant]
     Active Substance: PANTOPRAZOLE
     Indication: Product used for unknown indication
     Dosage: FORM STRENGTH: 40 MILLIGRAM
  8. ASPIRIN [Concomitant]
     Active Substance: ASPIRIN
     Indication: Product used for unknown indication
     Dosage: FORM STRENGTH: 81 MILLIGRAM
  9. CHOLESTYRAMINE [Concomitant]
     Active Substance: CHOLESTYRAMINE
     Indication: Product used for unknown indication
  10. VITAMIN D3 [Concomitant]
     Active Substance: CHOLECALCIFEROL
     Indication: Product used for unknown indication
  11. CIPRO [Concomitant]
     Active Substance: CIPROFLOXACIN HYDROCHLORIDE
     Indication: Product used for unknown indication
     Dosage: 1 PER DAY FOR MISSION TRIPS
  12. PROPRANOLOL [Concomitant]
     Active Substance: PROPRANOLOL HYDROCHLORIDE
     Indication: Product used for unknown indication
     Dosage: FORM STRENGTH: 10 ?FORM STRENGTH UNITS: MILLIGRAM
  13. CHOLESTEROL [Concomitant]
     Active Substance: CHOLESTEROL
     Indication: Product used for unknown indication
     Dosage: 2 TIMES PER DAY
  14. LOVAZA [Concomitant]
     Active Substance: OMEGA-3-ACID ETHYL ESTERS
     Indication: Product used for unknown indication

REACTIONS (7)
  - Squamous cell carcinoma of skin [Recovering/Resolving]
  - Sleep apnoea syndrome [Unknown]
  - Breast cancer female [Recovered/Resolved]
  - Arthritis [Unknown]
  - Sciatica [Not Recovered/Not Resolved]
  - Transient ischaemic attack [Unknown]
  - Restless legs syndrome [Unknown]

NARRATIVE: CASE EVENT DATE: 20200101
